FAERS Safety Report 13711455 (Version 1)
Quarter: 2017Q3

REPORT INFORMATION
  Report Type: Spontaneous
  Country: US (occurrence: US)
  Receive Date: 20170701
  Receipt Date: 20170701
  Transmission Date: 20171127
  Serious: Yes (Hospitalization, Disabling)
  Sender: FDA-Public Use
  Company Number: None

PATIENT
  Age: 35 Year
  Sex: Female
  Weight: 83.7 kg

DRUGS (8)
  1. ROLAIDS [Concomitant]
     Active Substance: CALCIUM CARBONATE\MAGNESIUM HYDROXIDE
  2. RANITIDINE. [Concomitant]
     Active Substance: RANITIDINE
  3. LEVOTHYROXINE. [Concomitant]
     Active Substance: LEVOTHYROXINE
  4. OCUFLOX [Suspect]
     Active Substance: OFLOXACIN
     Indication: EAR INFECTION
     Dosage: AURICULAR (OTIC)
     Dates: start: 20170612, end: 20170622
  5. TYLENOL [Concomitant]
     Active Substance: ACETAMINOPHEN
  6. BABY ASPIRIN [Concomitant]
     Active Substance: ASPIRIN
  7. PROAIR HFA [Concomitant]
     Active Substance: ALBUTEROL SULFATE
  8. LEVAQUIN [Suspect]
     Active Substance: LEVOFLOXACIN
     Indication: URINARY TRACT INFECTION
     Dosage: INTO A PORT?
     Dates: start: 20170608, end: 20170609

REACTIONS (17)
  - Burning sensation [None]
  - General physical health deterioration [None]
  - Ear infection [None]
  - Refusal of treatment by patient [None]
  - Screaming [None]
  - Urinary tract infection [None]
  - Agitation [None]
  - Chills [None]
  - Hallucination, auditory [None]
  - Pruritus [None]
  - Headache [None]
  - Pyrexia [None]
  - Confusional state [None]
  - Pain [None]
  - Erythema [None]
  - Aggression [None]
  - Delusion [None]

NARRATIVE: CASE EVENT DATE: 20170608
